FAERS Safety Report 5148758-0 (Version None)
Quarter: 2006Q4

REPORT INFORMATION
  Report Type: 
  Country: None (occurrence: None)
  Receive Date: 20061107
  Receipt Date: 20061025
  Transmission Date: 20070319
  Serious: Yes (Death, Hospitalization)
  Sender: FDA-Public Use
  Company Number: 2006BH014430

PATIENT

DRUGS (7)
  1. VINORELBINE [Suspect]
     Indication: NON-SMALL CELL LUNG CANCER
     Dosage: 20 MG/M**2; UNK; UNK
  2. CISPLATIN [Suspect]
     Indication: NON-SMALL CELL LUNG CANCER
     Dosage: 100 MG/M**2; UNK; UNK
  3. FLUOROURACIL [Suspect]
     Indication: NON-SMALL CELL LUNG CANCER
     Dosage: 800 MG/M**2; UNK; UNK
  4. LEUCOVORIN CALCIUM [Suspect]
     Indication: NON-SMALL CELL LUNG CANCER
     Dosage: 100 MG; UNK PO
     Route: 048
  5. SODIUM CHLORIDE [Concomitant]
  6. DEXTROSE INFUSION FLUID 5% [Concomitant]
  7. MANNITOL [Concomitant]

REACTIONS (1)
  - NEUTROPENIC SEPSIS [None]
